FAERS Safety Report 10153723 (Version 3)
Quarter: 2014Q2

REPORT INFORMATION
  Report Type: Spontaneous
  Country: GB (occurrence: GB)
  Receive Date: 20140506
  Receipt Date: 20140522
  Transmission Date: 20141212
  Serious: Yes (Life-Threatening, Other)
  Sender: FDA-Public Use
  Company Number: GB-ACCORD-018331

PATIENT
  Age: 41 Year
  Sex: Male

DRUGS (8)
  1. METHOTREXATE [Suspect]
     Indication: BURKITT^S LYMPHOMA
     Dates: start: 201306
  2. ZAPONEX [Suspect]
     Indication: PRODUCT USED FOR UNKNOWN INDICATION
     Route: 048
     Dates: start: 20100618
  3. CYCLOPHOSPHAMIDE/CYCLOPHOSPHAMIDE MONOHYDRATE [Suspect]
     Indication: BURKITT^S LYMPHOMA
     Dates: start: 20130610
  4. VINCRISTINE [Suspect]
     Indication: BURKITT^S LYMPHOMA
     Dates: start: 20130610
  5. MABTHERA [Suspect]
     Indication: BURKITT^S LYMPHOMA
     Route: 048
     Dates: start: 20130618
  6. RITUXIMAB [Suspect]
     Indication: BURKITT^S LYMPHOMA
     Route: 048
     Dates: start: 20130610
  7. GRANISETRON [Concomitant]
     Indication: BURKITT^S LYMPHOMA
     Route: 048
     Dates: start: 20130611
  8. SODIUM BICARBONATE [Concomitant]
     Indication: BURKITT^S LYMPHOMA
     Route: 065
     Dates: start: 20130618

REACTIONS (7)
  - Leukopenia [Recovered/Resolved]
  - Neutrophil count decreased [Recovered/Resolved]
  - Platelet count decreased [Recovered/Resolved]
  - White blood cell count increased [Recovered/Resolved]
  - Neutrophil count increased [Recovered/Resolved]
  - Eosinophil count increased [Recovered/Resolved]
  - Burkitt^s lymphoma [Not Recovered/Not Resolved]
